FAERS Safety Report 6801486-5 (Version None)
Quarter: 2010Q2

REPORT INFORMATION
  Report Type: 
  Country: None (occurrence: None)
  Receive Date: 20100629
  Receipt Date: 20100621
  Transmission Date: 20101027
  Serious: Yes (Other)
  Sender: FDA-Public Use
  Company Number: US-GILEAD-2010-0029181

PATIENT
  Sex: Female
  Weight: 74.91 kg

DRUGS (12)
  1. LETAIRIS [Suspect]
     Indication: PULMONARY ARTERIAL HYPERTENSION
     Route: 048
     Dates: start: 20100405, end: 20100510
  2. WARFARIN [Concomitant]
  3. LASIX [Concomitant]
  4. DILTIAZEM [Concomitant]
  5. AZITHROMYCIN [Concomitant]
  6. ADVAIR DISKUS 100/50 [Concomitant]
  7. SPIRIVA [Concomitant]
  8. XOPENEX [Concomitant]
  9. PREDNISONE [Concomitant]
  10. CALTRATE [Concomitant]
  11. POTASSIUM CHLORIDE [Concomitant]
  12. CENTRUM CALCIUM [Concomitant]

REACTIONS (6)
  - CARDIAC FAILURE CONGESTIVE [None]
  - CONSTIPATION [None]
  - HALLUCINATION [None]
  - HYPOACUSIS [None]
  - PERICARDIAL EFFUSION [None]
  - RHINITIS [None]
